FAERS Safety Report 8905930 (Version 1)
Quarter: 2012Q4

REPORT INFORMATION
  Report Type: 
  Country: US (occurrence: US)
  Receive Date: 20121109
  Receipt Date: 20121109
  Transmission Date: 20130627
  Serious: Yes (Death, Hospitalization)
  Sender: FDA-Public Use
  Company Number: US-GLAXOSMITHKLINE-A0787539A

PATIENT
  Sex: Male

DRUGS (1)
  1. AVANDIA [Suspect]
     Indication: TYPE 2 DIABETES MELLITUS
     Dosage: 8MG Per day
     Route: 048
     Dates: start: 2001, end: 2007

REACTIONS (13)
  - Cardiac arrest [Fatal]
  - Cardiac failure congestive [Unknown]
  - Myocardial infarction [Unknown]
  - Ischaemic cardiomyopathy [Unknown]
  - Pulmonary oedema [Unknown]
  - Subdural haematoma [Unknown]
  - Depression [Unknown]
  - Cardiovascular disorder [Unknown]
  - Condition aggravated [Unknown]
  - Coronary artery disease [Unknown]
  - Syncope [Unknown]
  - Atrial fibrillation [Unknown]
  - Arrhythmia [Unknown]
